FAERS Safety Report 20937975 (Version 1)
Quarter: 2022Q2

REPORT INFORMATION
  Report Type: Spontaneous
  Country: US (occurrence: None)
  Receive Date: 20220608
  Receipt Date: 20220608
  Transmission Date: 20220720
  Serious: Yes (unspecified)
  Sender: FDA-Public Use
  Company Number: None

PATIENT
  Age: 36 Year
  Sex: Female
  Weight: 79.65 kg

DRUGS (5)
  1. UBRELVY [Suspect]
     Active Substance: UBROGEPANT
     Indication: Migraine
     Dosage: OTHER QUANTITY : 1 TABLET(S);?FREQUENCY : DAILY;?
     Route: 048
     Dates: start: 20220607, end: 20220607
  2. PLAQUENIL [Concomitant]
     Active Substance: HYDROXYCHLOROQUINE SULFATE
  3. XANAX [Concomitant]
     Active Substance: ALPRAZOLAM
  4. BUPROPION [Concomitant]
     Active Substance: BUPROPION
  5. DIGESTIVE ENZIMES WITH PRO+PREBIOTICS [Concomitant]

REACTIONS (6)
  - Dyspnoea [None]
  - Oxygen saturation decreased [None]
  - Hyperhidrosis [None]
  - Feeling hot [None]
  - Feeling cold [None]
  - Arthralgia [None]

NARRATIVE: CASE EVENT DATE: 20220607
